FAERS Safety Report 18655067 (Version 6)
Quarter: 2021Q2

REPORT INFORMATION
  Report Type: Spontaneous
  Country: CA (occurrence: CA)
  Receive Date: 20201223
  Receipt Date: 20210407
  Transmission Date: 20210717
  Serious: Yes (Other)
  Sender: FDA-Public Use
  Company Number: CA-PFIZER INC-2020366867

PATIENT
  Age: 59 Year
  Sex: Male

DRUGS (2)
  1. TEGRETOL [Concomitant]
     Active Substance: CARBAMAZEPINE
     Indication: EPILEPSY
     Dosage: UNK
     Route: 065
  2. XELJANZ XR [Suspect]
     Active Substance: TOFACITINIB CITRATE
     Indication: RHEUMATOID ARTHRITIS
     Dosage: 11 MG, 1X/DAY
     Route: 048
     Dates: start: 20200916, end: 20201215

REACTIONS (9)
  - Subcutaneous abscess [Recovered/Resolved]
  - Back pain [Unknown]
  - Product dose omission issue [Unknown]
  - Headache [Unknown]
  - Skin infection [Not Recovered/Not Resolved]
  - Abscess [Recovered/Resolved]
  - Abdominal abscess [Recovered/Resolved]
  - Cellulitis [Recovered/Resolved]
  - Sleep disorder [Unknown]

NARRATIVE: CASE EVENT DATE: 20200920
